FAERS Safety Report 6093913-9 (Version None)
Quarter: 2009Q1

REPORT INFORMATION
  Report Type: 
  Country: None (occurrence: None)
  Receive Date: 20090226
  Receipt Date: 20090220
  Transmission Date: 20090719
  Serious: Yes (Other)
  Sender: FDA-Public Use
  Company Number: A0711392A

PATIENT
  Age: 54 Year
  Sex: Female
  Weight: 58 kg

DRUGS (7)
  1. SERETIDE [Suspect]
     Indication: ASTHMA
     Route: 055
     Dates: start: 19970101, end: 19980101
  2. SEREVENT [Suspect]
     Indication: ASTHMA
     Dosage: 25MCG TWICE PER DAY
     Dates: start: 19980101, end: 20080215
  3. SERETIDE [Suspect]
     Route: 055
     Dates: start: 20080216
  4. BAMIFIX [Concomitant]
     Dosage: 300MG AS REQUIRED
     Dates: start: 19980101, end: 20080215
  5. FLUTICASONE PROPIONATE [Concomitant]
     Dates: start: 19980101, end: 20080215
  6. SYNTHROID [Concomitant]
     Dates: start: 20060101
  7. IMMUNOTHERAPY [Concomitant]

REACTIONS (7)
  - ASTHMA [None]
  - CHEST DISCOMFORT [None]
  - HEADACHE [None]
  - MUSCLE SPASMS [None]
  - MUSCULOSKELETAL DISCOMFORT [None]
  - PRODUCT QUALITY ISSUE [None]
  - PSYCHOMOTOR HYPERACTIVITY [None]
